FAERS Safety Report 4969549-7 (Version None)
Quarter: 2006Q2

REPORT INFORMATION
  Report Type: 
  Country: None (occurrence: None)
  Receive Date: 20060406
  Receipt Date: 20060324
  Transmission Date: 20061013
  Serious: Yes (Hospitalization)
  Sender: FDA-Public Use
  Company Number: 2006_000010

PATIENT
  Age: 59 Year
  Sex: Male

DRUGS (10)
  1. DEPOCYT [Suspect]
     Indication: LEUKAEMIA
     Dosage: 50 MG; INTH
  2. DEPOCYT [Suspect]
     Indication: PROPHYLAXIS
     Dosage: 50 MG; INTH
  3. VANCOMYCIN [Concomitant]
  4. MERREM [Concomitant]
  5. DIFLUCAN [Concomitant]
  6. VALTREX [Concomitant]
  7. FLAGYL [Concomitant]
  8. HYPER-CVAD [Concomitant]
  9. BLOOD TRANSFUSION, AUXILIARY PRODUCTS [Concomitant]
  10. RITUXAN [Concomitant]

REACTIONS (5)
  - ANAEMIA [None]
  - ENTEROCOCCAL INFECTION [None]
  - FEBRILE NEUTROPENIA [None]
  - LUNG INFILTRATION [None]
  - NEUROTOXICITY [None]
